FAERS Safety Report 16159396 (Version 1)
Quarter: 2019Q2

REPORT INFORMATION
  Report Type: Spontaneous
  Country: DE (occurrence: DE)
  Receive Date: 20190404
  Receipt Date: 20190404
  Transmission Date: 20190711
  Serious: Yes (Death)
  Sender: FDA-Public Use
  Company Number: DE-AMNEAL PHARMACEUTICALS-2019AMN00394

PATIENT
  Sex: Male

DRUGS (5)
  1. MEROPENEM. [Suspect]
     Active Substance: MEROPENEM
     Indication: FUNGAL INFECTION
     Dosage: 2 G (EVERY 6 H)
     Route: 042
  2. MEROPENEM. [Suspect]
     Active Substance: MEROPENEM
     Dosage: 10, 1X/DAY
     Route: 042
  3. COLISTIN [Suspect]
     Active Substance: COLISTIN
     Indication: FUNGAL INFECTION
     Dosage: UNK
     Route: 065
  4. FOSFOMYCIN [Suspect]
     Active Substance: FOSFOMYCIN
     Indication: FUNGAL INFECTION
     Dosage: UNK
  5. MEROPENEM. [Suspect]
     Active Substance: MEROPENEM
     Dosage: 15 G, 1X/DAY (IN DOSES OF 2 G GIVEN OVER 3 H WITH A SINGLE DOSE OF 1 G/3 H ONCE DAILY)
     Route: 042

REACTIONS (3)
  - Impaired gastric emptying [Not Recovered/Not Resolved]
  - Vomiting [Not Recovered/Not Resolved]
  - Haemorrhage intracranial [Fatal]
